FAERS Safety Report 9121988 (Version 1)
Quarter: 2013Q1

REPORT INFORMATION
  Report Type: Spontaneous
  Country: US (occurrence: MG)
  Receive Date: 20130114
  Receipt Date: 20130114
  Transmission Date: 20140127
  Serious: Yes (Other)
  Sender: FDA-Public Use
  Company Number: US-BAYER-2013-002303

PATIENT
  Age: 30 Year
  Sex: Male

DRUGS (3)
  1. PRAZIQUANTEL [Suspect]
     Indication: PROPHYLAXIS
     Dosage: 40 MG/KG X1 DAY - 20 DAYS AFTER EXPOSURE
     Route: 048
  2. PRAZIQUANTEL [Suspect]
     Indication: SCHISTOSOMIASIS
     Dosage: 40 MG/KG X 1 DAY - 72 DAYS AFTER EXPOSURE
     Route: 048
  3. PRAZIQUANTEL [Suspect]
     Indication: PROPHYLAXIS
     Dosage: 40 MG/KG X1 DAY - 170 DAYS AFTER EXPOSURE
     Route: 048

REACTIONS (5)
  - Schistosomiasis [Recovered/Resolved]
  - Off label use [Recovered/Resolved]
  - Fatigue [Recovered/Resolved]
  - Malaise [Recovered/Resolved]
  - Pyrexia [Recovered/Resolved]
